FAERS Safety Report 16738023 (Version 2)
Quarter: 2019Q3

REPORT INFORMATION
  Report Type: Spontaneous
  Country: US (occurrence: US)
  Receive Date: 20190824
  Receipt Date: 20190923
  Transmission Date: 20191005
  Serious: Yes (Hospitalization, Disabling, Other)
  Sender: FDA-Public Use
  Company Number: US-AMGEN-USASP2019133450

PATIENT
  Age: 71 Year
  Sex: Female
  Weight: 149 kg

DRUGS (3)
  1. REQUIP [Concomitant]
     Active Substance: ROPINIROLE HYDROCHLORIDE
     Indication: RESTLESS LEGS SYNDROME
     Dosage: 1 MILLIGRAM, QHS
  2. PROLIA [Suspect]
     Active Substance: DENOSUMAB
     Indication: OSTEOPOROSIS POSTMENOPAUSAL
     Dosage: 60 MILLIGRAM, QMO
     Route: 065
     Dates: start: 201608, end: 201709
  3. GABAPENTIN. [Concomitant]
     Active Substance: GABAPENTIN
     Indication: RESTLESS LEGS SYNDROME
     Dosage: 100 MILLIGRAM, QD

REACTIONS (6)
  - Device related infection [Recovered/Resolved]
  - Hip arthroplasty [Recovered/Resolved]
  - Off label use [Unknown]
  - Depression [Unknown]
  - Antibiotic therapy [Unknown]
  - Pathological fracture [Unknown]

NARRATIVE: CASE EVENT DATE: 201605
